FAERS Safety Report 5637316-7 (Version None)
Quarter: 2008Q1

REPORT INFORMATION
  Report Type: 
  Country: None (occurrence: None)
  Receive Date: 20080225
  Receipt Date: 20080211
  Transmission Date: 20080703
  Serious: Yes (Hospitalization)
  Sender: FDA-Public Use
  Company Number: FR-ROCHE-533172

PATIENT
  Age: 51 Year
  Sex: Female

DRUGS (3)
  1. XELODA [Suspect]
     Indication: BREAST CANCER
     Dosage: DOSE: 25 TABLETS OF 500 MG. ON DAY 5 OF CYCLE.
     Route: 048
     Dates: start: 20071121
  2. XELODA [Suspect]
     Dosage: CO-INDICATION: THYROID CANCER.
     Route: 048
  3. FLUOROURACIL [Concomitant]

REACTIONS (1)
  - SUICIDE ATTEMPT [None]
